FAERS Safety Report 22318998 (Version 1)
Quarter: 2023Q2

REPORT INFORMATION
  Report Type: Spontaneous
  Country: US (occurrence: US)
  Receive Date: 20230515
  Receipt Date: 20230515
  Transmission Date: 20230721
  Serious: Yes (Hospitalization, Other)
  Sender: FDA-Public Use
  Company Number: US-VIVUS, Inc.-2023V1000440

PATIENT
  Age: 68 Year
  Sex: Female

DRUGS (1)
  1. QSYMIA [Suspect]
     Active Substance: PHENTERMINE HYDROCHLORIDE\TOPIRAMATE
     Indication: Weight decreased
     Dosage: PHENTERMINE 37.5 MG/TOPIRAMATE 25 MG
     Route: 065

REACTIONS (1)
  - Dilated cardiomyopathy [Recovering/Resolving]
